FAERS Safety Report 22648823 (Version 1)
Quarter: 2023Q2

REPORT INFORMATION
  Report Type: Report from Study
  Country: CA (occurrence: CA)
  Receive Date: 20230628
  Receipt Date: 20230628
  Transmission Date: 20230722
  Serious: Yes (Hospitalization)
  Sender: FDA-Public Use
  Company Number: CA-TAKEDA-2022TUS023669

PATIENT
  Age: 52 Year
  Sex: Female

DRUGS (2)
  1. VEDOLIZUMAB [Suspect]
     Active Substance: VEDOLIZUMAB
     Indication: Crohn^s disease
     Dosage: 300 MILLIGRAM
     Route: 042
     Dates: start: 20220317
  2. VEDOLIZUMAB [Suspect]
     Active Substance: VEDOLIZUMAB
     Indication: Crohn^s disease
     Dosage: 108 MILLIGRAM, Q2WEEKS
     Route: 058
     Dates: start: 20220624

REACTIONS (15)
  - Intestinal resection [Unknown]
  - Defaecation urgency [Unknown]
  - Dehydration [Unknown]
  - Dry throat [Unknown]
  - Diarrhoea [Unknown]
  - Poor quality sleep [Unknown]
  - Asthenia [Unknown]
  - Dry mouth [Unknown]
  - Product administration error [Unknown]
  - Product leakage [Unknown]
  - Product storage error [Unknown]
  - Speech disorder [Unknown]
  - Abscess [Unknown]
  - Headache [Unknown]
  - Nausea [Unknown]

NARRATIVE: CASE EVENT DATE: 20230601
